FAERS Safety Report 9243247 (Version 1)
Quarter: 2013Q2

REPORT INFORMATION
  Report Type: Spontaneous
  Country: US (occurrence: US)
  Receive Date: 20130419
  Receipt Date: 20130419
  Transmission Date: 20140414
  Serious: Yes (Death)
  Sender: FDA-Public Use
  Company Number: CHPA2013US006783

PATIENT
  Age: 80 Year
  Sex: Male

DRUGS (3)
  1. EXCEDRIN PM EXPRESS GELS [Suspect]
     Indication: HEADACHE
     Dosage: UNK, UNK
     Route: 048
  2. EXCEDRIN PM EXPRESS GELS [Suspect]
     Indication: INSOMNIA
  3. TYLENOL PM [Concomitant]

REACTIONS (2)
  - Death [Fatal]
  - Off label use [Unknown]
